FAERS Safety Report 25029127 (Version 2)
Quarter: 2025Q2

REPORT INFORMATION
  Report Type: Spontaneous
  Country: US (occurrence: US)
  Receive Date: 20250303
  Receipt Date: 20250624
  Transmission Date: 20250716
  Serious: Yes (Hospitalization)
  Sender: SANOFI AVENTIS
  Company Number: US-SA-2025SA060647

PATIENT
  Age: 65 Year
  Sex: Female
  Weight: 99.09 kg

DRUGS (52)
  1. DUPIXENT [Suspect]
     Active Substance: DUPILUMAB
     Indication: Asthma
     Dosage: 300 MG, QOW
     Route: 058
     Dates: end: 202504
  2. EPINEPHRINE [Concomitant]
     Active Substance: EPINEPHRINE
  3. EPINEPHRINE [Concomitant]
     Active Substance: EPINEPHRINE
  4. PROLASTIN [Concomitant]
     Active Substance: .ALPHA.1-PROTEINASE INHIBITOR HUMAN
  5. PROLASTIN [Concomitant]
     Active Substance: .ALPHA.1-PROTEINASE INHIBITOR HUMAN
  6. HEPARIN [Concomitant]
     Active Substance: HEPARIN SODIUM
  7. SODIUM CHLORIDE [Concomitant]
     Active Substance: SODIUM CHLORIDE
  8. SODIUM CHLORIDE [Concomitant]
     Active Substance: SODIUM CHLORIDE
  9. LASIX [Concomitant]
     Active Substance: FUROSEMIDE
  10. LASIX [Concomitant]
     Active Substance: FUROSEMIDE
  11. ACYCLOVIR [Concomitant]
     Active Substance: ACYCLOVIR
  12. ACYCLOVIR [Concomitant]
     Active Substance: ACYCLOVIR
  13. NAPROXEN SODIUM [Concomitant]
     Active Substance: NAPROXEN SODIUM
  14. NAPROXEN SODIUM [Concomitant]
     Active Substance: NAPROXEN SODIUM
  15. PRAVASTATIN SODIUM [Concomitant]
     Active Substance: PRAVASTATIN SODIUM
  16. PRAVASTATIN SODIUM [Concomitant]
     Active Substance: PRAVASTATIN SODIUM
  17. FLECAINIDE ACETATE [Concomitant]
     Active Substance: FLECAINIDE ACETATE
  18. MONTELUKAST SODIUM [Concomitant]
     Active Substance: MONTELUKAST SODIUM
  19. MONTELUKAST SODIUM [Concomitant]
     Active Substance: MONTELUKAST SODIUM
  20. LANSOPRAZOLE [Concomitant]
     Active Substance: LANSOPRAZOLE
  21. LANSOPRAZOLE [Concomitant]
     Active Substance: LANSOPRAZOLE
  22. MAXALT [Concomitant]
     Active Substance: RIZATRIPTAN BENZOATE
  23. MAXALT [Concomitant]
     Active Substance: RIZATRIPTAN BENZOATE
  24. TIZANIDINE HYDROCHLORIDE [Concomitant]
     Active Substance: TIZANIDINE HYDROCHLORIDE
  25. TIZANIDINE HYDROCHLORIDE [Concomitant]
     Active Substance: TIZANIDINE HYDROCHLORIDE
  26. CITRUCEL [Concomitant]
     Active Substance: METHYLCELLULOSE (4000 CPS)
  27. CITRUCEL [Concomitant]
     Active Substance: METHYLCELLULOSE (4000 CPS)
  28. AIRSUPRA [Concomitant]
     Active Substance: ALBUTEROL SULFATE\BUDESONIDE
  29. AIRSUPRA [Concomitant]
     Active Substance: ALBUTEROL SULFATE\BUDESONIDE
  30. PREVACID [Concomitant]
     Active Substance: LANSOPRAZOLE
  31. PREVACID [Concomitant]
     Active Substance: LANSOPRAZOLE
  32. METOPROLOL TARTRATE [Concomitant]
     Active Substance: METOPROLOL TARTRATE
  33. METOPROLOL TARTRATE [Concomitant]
     Active Substance: METOPROLOL TARTRATE
  34. PREDNISONE [Concomitant]
     Active Substance: PREDNISONE
  35. PREDNISONE [Concomitant]
     Active Substance: PREDNISONE
  36. VITAMIN B COMPLEX [Concomitant]
     Active Substance: CYANOCOBALAMIN\DEXPANTHENOL\NIACINAMIDE\PYRIDOXINE HYDROCHLORIDE\RIBOFLAVIN 5^-PHOSPHATE SODIUM\THIA
  37. VITAMIN B COMPLEX [Concomitant]
     Active Substance: CYANOCOBALAMIN\DEXPANTHENOL\NIACINAMIDE\PYRIDOXINE HYDROCHLORIDE\RIBOFLAVIN 5^-PHOSPHATE SODIUM\THIA
  38. VITAMIN D3 [Concomitant]
     Active Substance: CHOLECALCIFEROL
  39. VITAMIN D3 [Concomitant]
     Active Substance: CHOLECALCIFEROL
  40. VITAMIN C [Concomitant]
     Active Substance: ASCORBIC ACID
  41. VITAMIN C [Concomitant]
     Active Substance: ASCORBIC ACID
  42. OXYGEN [Concomitant]
     Active Substance: OXYGEN
  43. OXYGEN [Concomitant]
     Active Substance: OXYGEN
  44. TRELEGY ELLIPTA [Concomitant]
     Active Substance: FLUTICASONE FUROATE\UMECLIDINIUM BROMIDE\VILANTEROL TRIFENATATE
  45. TRELEGY ELLIPTA [Concomitant]
     Active Substance: FLUTICASONE FUROATE\UMECLIDINIUM BROMIDE\VILANTEROL TRIFENATATE
  46. ASPIRIN [Concomitant]
     Active Substance: ASPIRIN
  47. SENNA [Concomitant]
     Active Substance: SENNOSIDES
  48. SENNA [Concomitant]
     Active Substance: SENNOSIDES
  49. PROAIR RESPICLICK [Concomitant]
     Active Substance: ALBUTEROL SULFATE
  50. Women^s daily [Concomitant]
  51. Women^s daily [Concomitant]
  52. OCTAGAM IMMUNE GLOBULIN (HUMAN) [Concomitant]
     Active Substance: HUMAN IMMUNOGLOBULIN G

REACTIONS (3)
  - Dyspnoea [Unknown]
  - Viral infection [Unknown]
  - Illness [Unknown]

NARRATIVE: CASE EVENT DATE: 20250101
